FAERS Safety Report 23161272 (Version 2)
Quarter: 2024Q1

REPORT INFORMATION
  Report Type: Spontaneous
  Country: SK (occurrence: SK)
  Receive Date: 20231108
  Receipt Date: 20240201
  Transmission Date: 20240410
  Serious: Yes (Other)
  Sender: FDA-Public Use
  Company Number: SK-BAYER-2023A157143

PATIENT

DRUGS (1)
  1. LAROTRECTINIB [Suspect]
     Active Substance: LAROTRECTINIB
     Indication: Congenital fibrosarcoma
     Dosage: UNK

REACTIONS (8)
  - Cytopenia [None]
  - Haemorrhage [None]
  - Ileus [None]
  - Intestinal perforation [None]
  - Protein-losing gastroenteropathy [None]
  - Malabsorption [None]
  - Liver disorder [None]
  - Off label use [None]
